FAERS Safety Report 11561356 (Version 22)
Quarter: 2018Q2

REPORT INFORMATION
  Report Type: Report from Study
  Country: BR (occurrence: BR)
  Receive Date: 20150928
  Receipt Date: 20180409
  Transmission Date: 20180711
  Serious: Yes (Death, Other)
  Sender: FDA-Public Use
  Company Number: PHHY2015BR065369

PATIENT
  Age: 55 Year
  Sex: Male
  Weight: 50 kg

DRUGS (15)
  1. CONCARDIO [Concomitant]
     Active Substance: BISOPROLOL FUMARATE
     Indication: TRICUSPID VALVE INCOMPETENCE
     Dosage: 2.5 MG, QD
     Route: 048
  2. AFINITOR [Suspect]
     Active Substance: EVEROLIMUS
     Dosage: 5 MG, QD
     Route: 048
     Dates: start: 201411
  3. ENALAPRIL MALEATE. [Concomitant]
     Active Substance: ENALAPRIL MALEATE
     Indication: TRICUSPID VALVE INCOMPETENCE
     Dosage: 5 MG, QD STARTED 6 MONTHS AGO
     Route: 048
  4. ASPIRIN. [Concomitant]
     Active Substance: ASPIRIN
     Indication: TRICUSPID VALVE INCOMPETENCE
     Dosage: UNK UNK, QD (6 MONTHS AGO)
     Route: 048
  5. SANDOSTATIN LAR DEPOT [Suspect]
     Active Substance: OCTREOTIDE ACETATE
     Indication: HEPATIC CANCER
  6. AFINITOR [Suspect]
     Active Substance: EVEROLIMUS
     Indication: NEUROENDOCRINE TUMOUR
     Dosage: 10 MG, QD
     Route: 048
     Dates: start: 201311, end: 201411
  7. LEVOFLOXACIN. [Concomitant]
     Active Substance: LEVOFLOXACIN
     Indication: PRODUCT USED FOR UNKNOWN INDICATION
     Route: 065
  8. SIMVASTATIN. [Suspect]
     Active Substance: SIMVASTATIN
     Indication: PRODUCT USED FOR UNKNOWN INDICATION
     Route: 065
  9. FUROSEMIDE. [Suspect]
     Active Substance: FUROSEMIDE
     Indication: PERICARDIAL EFFUSION
     Dosage: 2 DF (40MG), QD
     Route: 048
  10. SPIRONOLACTONE. [Suspect]
     Active Substance: SPIRONOLACTONE
     Indication: PERICARDIAL EFFUSION
     Dosage: 50 MG, QD
     Route: 048
  11. SANDOSTATIN LAR DEPOT [Suspect]
     Active Substance: OCTREOTIDE ACETATE
     Indication: NEUROENDOCRINE TUMOUR
     Dosage: 30 MG, QMO
     Route: 030
     Dates: start: 201305
  12. AFINITOR [Suspect]
     Active Substance: EVEROLIMUS
     Dosage: 5 MG, QD
     Route: 048
  13. FUROSEMIDE. [Suspect]
     Active Substance: FUROSEMIDE
     Indication: TRICUSPID VALVE INCOMPETENCE
  14. CARVEDILOL. [Concomitant]
     Active Substance: CARVEDILOL
     Indication: PERICARDIAL EFFUSION
     Dosage: 2 DF, QD
     Route: 048
     Dates: start: 201511
  15. METFORMIN [Suspect]
     Active Substance: METFORMIN HYDROCHLORIDE
     Indication: GLUCOSE TOLERANCE IMPAIRED
     Dosage: 500 MG, QD
     Route: 048

REACTIONS (36)
  - Malaise [Unknown]
  - Vision blurred [Recovering/Resolving]
  - Ascites [Not Recovered/Not Resolved]
  - Renal disorder [Unknown]
  - Weight bearing difficulty [Unknown]
  - Injection site pain [Recovered/Resolved]
  - Hyperhidrosis [Recovering/Resolving]
  - Vomiting [Recovering/Resolving]
  - Blood sodium abnormal [Unknown]
  - Hypotension [Unknown]
  - Injection site pain [Unknown]
  - Pericardial disease [Unknown]
  - Pneumonitis [Recovered/Resolved]
  - Blood pressure decreased [Unknown]
  - Limb discomfort [Recovered/Resolved]
  - Cardiac disorder [Unknown]
  - Decreased activity [Unknown]
  - Scar [Unknown]
  - Gait disturbance [Recovered/Resolved]
  - Wound [Recovered/Resolved]
  - Blood potassium abnormal [Unknown]
  - Blood urea abnormal [Unknown]
  - Muscle disorder [Recovered/Resolved]
  - Sensory loss [Unknown]
  - Fatigue [Unknown]
  - Injection site swelling [Recovered/Resolved]
  - Asthenia [Recovering/Resolving]
  - Visual impairment [Unknown]
  - Glucose tolerance impaired [Recovering/Resolving]
  - Myocardial infarction [Fatal]
  - Pericardial effusion [Recovering/Resolving]
  - Skin hypertrophy [Unknown]
  - Post procedural complication [Fatal]
  - Tricuspid valve disease [Unknown]
  - Nervousness [Unknown]
  - Fluid retention [Recovered/Resolved]

NARRATIVE: CASE EVENT DATE: 201311
